FAERS Safety Report 22933286 (Version 3)
Quarter: 2023Q4

REPORT INFORMATION
  Report Type: Report from Study
  Country: FI (occurrence: FI)
  Receive Date: 20230912
  Receipt Date: 20231006
  Transmission Date: 20240109
  Serious: Yes (Other)
  Sender: FDA-Public Use
  Company Number: FI-JNJFOC-20230618750

PATIENT
  Sex: Female

DRUGS (2)
  1. TALQUETAMAB [Suspect]
     Active Substance: TALQUETAMAB
     Indication: Plasma cell myeloma
     Dosage: 2 MG/ML
     Route: 065
     Dates: start: 20230525
  2. TALQUETAMAB [Suspect]
     Active Substance: TALQUETAMAB
     Dosage: 40 MG/ML, LAST DOSE OF TALQUETAMAB WAS ON 22-AUG-2023.
     Route: 065

REACTIONS (4)
  - Plasma cell myeloma [Unknown]
  - Scleritis [Recovered/Resolved]
  - Uveitis [Recovered/Resolved]
  - Odynophagia [Unknown]

NARRATIVE: CASE EVENT DATE: 20230801
